FAERS Safety Report 18128197 (Version 6)
Quarter: 2021Q2

REPORT INFORMATION
  Report Type: Report from Study
  Country: US (occurrence: US)
  Receive Date: 20200810
  Receipt Date: 20210428
  Transmission Date: 20210717
  Serious: Yes (Hospitalization, Other)
  Sender: FDA-Public Use
  Company Number: US-BIOVITRUM-2020US4124

PATIENT
  Sex: Male

DRUGS (1)
  1. KINERET [Suspect]
     Active Substance: ANAKINRA
     Indication: RHEUMATOID ARTHRITIS
     Route: 058
     Dates: start: 20190403

REACTIONS (9)
  - Product dose omission issue [Unknown]
  - Cognitive disorder [Unknown]
  - Rheumatoid arthritis [Unknown]
  - Blood glucose abnormal [Unknown]
  - Influenza [Unknown]
  - COVID-19 [Unknown]
  - Blood pressure increased [Unknown]
  - Irritable bowel syndrome [Unknown]
  - Memory impairment [Unknown]
